FAERS Safety Report 20122734 (Version 1)
Quarter: 2021Q4

REPORT INFORMATION
  Report Type: Spontaneous
  Country: US (occurrence: US)
  Receive Date: 20211128
  Receipt Date: 20211128
  Transmission Date: 20220303
  Serious: Yes (Other)
  Sender: FDA-Public Use
  Company Number: US-SUN PHARMACEUTICAL INDUSTRIES LTD-2021R1-318980

PATIENT
  Age: 28 Year
  Sex: Male

DRUGS (3)
  1. DICYCLOMINE [Interacting]
     Active Substance: DICYCLOMINE HYDROCHLORIDE
     Indication: Irritable bowel syndrome
     Dosage: 10 MILLIGRAM, TID
     Route: 048
  2. HYDROCHLOROTHIAZIDE [Interacting]
     Active Substance: HYDROCHLOROTHIAZIDE
     Indication: Hypertension
     Dosage: 25 MILLIGRAM, DAILY
     Route: 048
  3. TELMISARTAN [Concomitant]
     Active Substance: TELMISARTAN
     Indication: Hypertension
     Dosage: 20 MILLIGRAM, DAILY
     Route: 048

REACTIONS (3)
  - Drug interaction [Unknown]
  - Alkalosis hypochloraemic [Recovering/Resolving]
  - Drug ineffective [Unknown]
